FAERS Safety Report 5931840-5 (Version None)
Quarter: 2008Q4

REPORT INFORMATION
  Report Type: 
  Country: None (occurrence: None)
  Receive Date: 20081027
  Receipt Date: 20081015
  Transmission Date: 20090506
  Serious: Yes (Other)
  Sender: FDA-Public Use
  Company Number: JP-PFIZER INC-2008060160

PATIENT
  Sex: Male

DRUGS (2)
  1. GABAPEN [Suspect]
     Indication: EPILEPSY
     Route: 048
     Dates: start: 20080624, end: 20080731
  2. VALPROATE SODIUM [Concomitant]
     Route: 048
     Dates: start: 20080506

REACTIONS (2)
  - RENAL IMPAIRMENT [None]
  - SOMNOLENCE [None]
